FAERS Safety Report 8036501-7 (Version None)
Quarter: 2012Q1

REPORT INFORMATION
  Report Type: 
  Country: None (occurrence: None)
  Receive Date: 20120109
  Receipt Date: 20120103
  Transmission Date: 20120608
  Serious: No
  Sender: FDA-Public Use
  Company Number: 2011SP058458

PATIENT
  Age: 40 Year
  Sex: Female

DRUGS (4)
  1. ZYPREXA [Concomitant]
  2. LAMICTAL [Concomitant]
  3. SAPHRIS [Suspect]
     Indication: BIPOLAR I DISORDER
     Dosage: 5 MG;BID;SL
     Route: 060
     Dates: start: 20111201
  4. LITHIUM CARBONATE [Concomitant]

REACTIONS (4)
  - MALAISE [None]
  - NAUSEA [None]
  - HYPOTENSION [None]
  - SYNCOPE [None]
